FAERS Safety Report 10215556 (Version 1)
Quarter: 2014Q2

REPORT INFORMATION
  Report Type: Spontaneous
  Country: US (occurrence: US)
  Receive Date: 20140604
  Receipt Date: 20140604
  Transmission Date: 20141212
  Serious: Yes (Hospitalization)
  Sender: FDA-Public Use
  Company Number: US-AMGEN-USASP2014040867

PATIENT
  Age: 54 Year
  Sex: Female

DRUGS (2)
  1. ENBREL [Suspect]
     Indication: RHEUMATOID ARTHRITIS
     Dosage: 50 MG, QWK
     Route: 065
     Dates: start: 20130124
  2. METHOTREXATE [Concomitant]
     Dosage: UNK UNK, QWK

REACTIONS (2)
  - Knee arthroplasty [Not Recovered/Not Resolved]
  - Animal bite [Recovered/Resolved]
